FAERS Safety Report 21479903 (Version 1)
Quarter: 2022Q4

REPORT INFORMATION
  Report Type: Spontaneous
  Country: US (occurrence: None)
  Receive Date: 20221018
  Receipt Date: 20221018
  Transmission Date: 20230113
  Serious: Yes (Death)
  Sender: FDA-Public Use
  Company Number: None

PATIENT
  Age: 83 Year
  Sex: Male

DRUGS (11)
  1. PIRFENIDONE [Suspect]
     Active Substance: PIRFENIDONE
     Indication: Interstitial lung disease
     Dates: start: 20190304, end: 20221004
  2. REMERON [Concomitant]
     Active Substance: MIRTAZAPINE
  3. LOSARTAN [Concomitant]
     Active Substance: LOSARTAN
  4. ZOCOR [Concomitant]
     Active Substance: SIMVASTATIN
  5. ALBUTEROL [Concomitant]
     Active Substance: ALBUTEROL
  6. ATROVENT INHL SOLN [Concomitant]
  7. OMEPRAZOLE [Concomitant]
     Active Substance: OMEPRAZOLE
  8. SIMETHOCONE [Concomitant]
  9. CALCIUM CARBONATE [Concomitant]
     Active Substance: CALCIUM CARBONATE
  10. VITAMINS [Concomitant]
     Active Substance: VITAMINS
  11. MORPHINE [Concomitant]
     Active Substance: MORPHINE

REACTIONS (1)
  - Death [None]

NARRATIVE: CASE EVENT DATE: 20221004
